FAERS Safety Report 8846513 (Version 2)
Quarter: 2012Q4

REPORT INFORMATION
  Report Type: 
  Country: US (occurrence: US)
  Receive Date: 20121017
  Receipt Date: 20121213
  Transmission Date: 20130627
  Serious: Yes (Other)
  Sender: FDA-Public Use
  Company Number: US-GLAXOSMITHKLINE-A0571628A

PATIENT
  Age: 61 Year
  Sex: Male
  Weight: 95 kg

DRUGS (4)
  1. AVANDIA [Suspect]
     Indication: DIABETES MELLITUS
     Dosage: 4MG Twice per day
     Route: 048
     Dates: start: 2002, end: 200606
  2. TRIAM/HCTZ [Concomitant]
  3. DILANTIN [Concomitant]
  4. AMARYL [Concomitant]

REACTIONS (7)
  - Heart rate increased [Not Recovered/Not Resolved]
  - Palpitations [Unknown]
  - Dysuria [Unknown]
  - Cerebrovascular accident [Unknown]
  - Cardiac disorder [Unknown]
  - Dyspnoea [Unknown]
  - Cardiac failure congestive [Unknown]
